FAERS Safety Report 13539071 (Version 3)
Quarter: 2017Q2

REPORT INFORMATION
  Report Type: Spontaneous
  Country: US (occurrence: US)
  Receive Date: 20170512
  Receipt Date: 20170629
  Transmission Date: 20170830
  Serious: No
  Sender: FDA-Public Use
  Company Number: PHEH2017US013968

PATIENT
  Sex: Female

DRUGS (2)
  1. VIVELLE-DOT [Suspect]
     Active Substance: ESTRADIOL
     Indication: PRODUCT USED FOR UNKNOWN INDICATION
     Dosage: 0.05 MG, QD
     Route: 065
  2. VIVELLE-DOT [Suspect]
     Active Substance: ESTRADIOL
     Dosage: 0.75 MG, BIW
     Route: 065

REACTIONS (5)
  - Feeling abnormal [Unknown]
  - Product quality issue [Unknown]
  - Wrong technique in product usage process [Unknown]
  - Product adhesion issue [Unknown]
  - Malaise [Unknown]
